FAERS Safety Report 24157779 (Version 1)
Quarter: 2024Q3

REPORT INFORMATION
  Report Type: Spontaneous
  Country: US (occurrence: None)
  Receive Date: 20240731
  Receipt Date: 20240731
  Transmission Date: 20241016
  Serious: Yes (Death)
  Sender: Public
  Company Number: None

PATIENT
  Age: 69 Year
  Sex: Female

DRUGS (1)
  1. LENALIDOMIDE [Suspect]
     Active Substance: LENALIDOMIDE
     Indication: Plasma cell myeloma
     Dosage: 25MG QD ORAL
     Route: 048
     Dates: start: 20240424, end: 20240713

REACTIONS (7)
  - Therapy interrupted [None]
  - Acute respiratory failure [None]
  - Pericardial effusion [None]
  - Pneumonitis [None]
  - Multiple organ dysfunction syndrome [None]
  - Acute respiratory distress syndrome [None]
  - Treatment failure [None]

NARRATIVE: CASE EVENT DATE: 20240731
